FAERS Safety Report 15225919 (Version 1)
Quarter: 2018Q3

REPORT INFORMATION
  Report Type: Report from Study
  Country: US (occurrence: US)
  Receive Date: 20180801
  Receipt Date: 20180801
  Transmission Date: 20181010
  Serious: Yes (Hospitalization, Other)
  Sender: FDA-Public Use
  Company Number: US-SA-2018SA206104

PATIENT
  Age: 44 Year
  Sex: Female
  Weight: 155.1 kg

DRUGS (1)
  1. INSULIN GLARGINE [Suspect]
     Active Substance: INSULIN GLARGINE
     Dosage: 104 U, QD
     Dates: start: 20180504, end: 20180726

REACTIONS (7)
  - Diabetic ketoacidosis [Not Recovered/Not Resolved]
  - Blood glucose increased [Not Recovered/Not Resolved]
  - Nausea [Not Recovered/Not Resolved]
  - Malaise [Not Recovered/Not Resolved]
  - Drug dose omission [Not Recovered/Not Resolved]
  - Vomiting [Not Recovered/Not Resolved]
  - Glycosylated haemoglobin increased [Not Recovered/Not Resolved]

NARRATIVE: CASE EVENT DATE: 20180724
